FAERS Safety Report 15548425 (Version 2)
Quarter: 2018Q4

REPORT INFORMATION
  Report Type: Spontaneous
  Country: US (occurrence: US)
  Receive Date: 20181025
  Receipt Date: 20181120
  Transmission Date: 20190205
  Serious: No
  Sender: FDA-Public Use
  Company Number: US-JNJFOC-20181010160

PATIENT
  Sex: Female

DRUGS (4)
  1. WOMENS ROGAINE UNSCENTED [Suspect]
     Active Substance: MINOXIDIL
     Indication: ALOPECIA
     Dosage: ONCE A DAY AT NIGHT
     Route: 061
     Dates: start: 201708
  2. WOMENS ROGAINE UNSCENTED [Suspect]
     Active Substance: MINOXIDIL
     Route: 061
  3. SPIRONOLACTONE. [Concomitant]
     Active Substance: SPIRONOLACTONE
     Indication: HORMONE LEVEL ABNORMAL
     Route: 065
  4. SPIRONOLACTONE. [Concomitant]
     Active Substance: SPIRONOLACTONE
     Indication: ACNE
     Route: 065

REACTIONS (2)
  - Alopecia [Not Recovered/Not Resolved]
  - Drug effect incomplete [Unknown]
